FAERS Safety Report 10883342 (Version 3)
Quarter: 2015Q1

REPORT INFORMATION
  Report Type: Report from Study
  Country: DE (occurrence: DE)
  Receive Date: 20150303
  Receipt Date: 20150318
  Transmission Date: 20150721
  Serious: Yes (Death, Other)
  Sender: FDA-Public Use
  Company Number: DE-ACTELION-A-US2015-113920

PATIENT
  Age: 21 Year
  Sex: Male

DRUGS (6)
  1. TRACLEER [Concomitant]
     Active Substance: BOSENTAN\BOSENTAN MONOHYDRATE
     Indication: PULMONARY ARTERIAL HYPERTENSION
     Route: 048
  2. ACETYLSALICYLIC ACID [Concomitant]
     Active Substance: ASPIRIN
  3. KREON [Concomitant]
     Active Substance: PANCRELIPASE
  4. VENTAVIS [Suspect]
     Active Substance: ILOPROST
     Indication: PULMONARY ARTERIAL HYPERTENSION
     Dosage: 5 MCG, 5X DAILY
     Route: 055
     Dates: start: 20130221
  5. REVATIO [Concomitant]
     Active Substance: SILDENAFIL CITRATE
  6. L-THYROXIN [Concomitant]
     Active Substance: LEVOTHYROXINE SODIUM

REACTIONS (2)
  - Cardiac arrest [Fatal]
  - Seizure [Unknown]

NARRATIVE: CASE EVENT DATE: 20150221
